FAERS Safety Report 4662629-5 (Version None)
Quarter: 2005Q2

REPORT INFORMATION
  Report Type: 
  Country: None (occurrence: None)
  Receive Date: 20050513
  Receipt Date: 20050513
  Transmission Date: 20051028
  Serious: Yes (Hospitalization)
  Sender: FDA-Public Use
  Company Number: None

PATIENT
  Sex: Male

DRUGS (1)
  1. IRESSA [Suspect]
     Indication: COLON CANCER
     Dosage: 500 MG/M2/QD   QD   ORAL
     Route: 048
     Dates: start: 20050315, end: 20050511

REACTIONS (1)
  - DYSPNOEA [None]
